FAERS Safety Report 12254898 (Version 1)
Quarter: 2016Q2

REPORT INFORMATION
  Report Type: Spontaneous
  Country: US (occurrence: US)
  Receive Date: 20160411
  Receipt Date: 20160411
  Transmission Date: 20160815
  Serious: No
  Sender: FDA-Public Use
  Company Number: US-TEIKOKU PHARMA USA-TPU2016-00199

PATIENT
  Sex: Male
  Weight: 99.88 kg

DRUGS (4)
  1. LIDOCAINE PATCH [Suspect]
     Active Substance: LIDOCAINE
     Indication: BACK PAIN
     Route: 061
     Dates: start: 201505, end: 2015
  2. LIDOCAINE PATCH [Suspect]
     Active Substance: LIDOCAINE
     Route: 061
     Dates: start: 201510, end: 2015
  3. LIDOCAINE PATCH 5% [Suspect]
     Active Substance: LIDOCAINE
     Route: 061
  4. ESOMEPRAZOLE [Concomitant]
     Active Substance: ESOMEPRAZOLE
     Indication: BACK PAIN
     Route: 048
     Dates: start: 201603

REACTIONS (2)
  - Application site coldness [Recovered/Resolved]
  - Drug ineffective for unapproved indication [Unknown]
